FAERS Safety Report 19783329 (Version 6)
Quarter: 2022Q1

REPORT INFORMATION
  Report Type: Report from Study
  Country: US (occurrence: US)
  Receive Date: 20210903
  Receipt Date: 20220321
  Transmission Date: 20220423
  Serious: Yes (Hospitalization)
  Sender: FDA-Public Use
  Company Number: US-NOVARTISPH-NVSC2021US195619

PATIENT
  Sex: Male

DRUGS (2)
  1. ENTRESTO [Suspect]
     Active Substance: SACUBITRIL\VALSARTAN
     Indication: Cardiac failure
     Dosage: 1 DF (24/26 MG), BID
     Route: 048
  2. ENTRESTO [Suspect]
     Active Substance: SACUBITRIL\VALSARTAN
     Dosage: 1 DF (49/51 MG), BID
     Route: 048

REACTIONS (8)
  - Renal failure [Unknown]
  - Dry mouth [Unknown]
  - Dyspnoea [Unknown]
  - Heart rate irregular [Unknown]
  - Fluid retention [Unknown]
  - Peripheral swelling [Unknown]
  - Asthenia [Unknown]
  - Dizziness [Unknown]
